FAERS Safety Report 4340781-9 (Version None)
Quarter: 2004Q2

REPORT INFORMATION
  Report Type: 
  Country: None (occurrence: None)
  Receive Date: 20040419
  Receipt Date: 20030521
  Transmission Date: 20050107
  Serious: Yes (Other)
  Sender: FDA-Public Use
  Company Number: US-GLAXOSMITHKLINE-A0409170A

PATIENT
  Age: 44 Year
  Sex: Female

DRUGS (2)
  1. LITHIUM CARBONATE [Suspect]
     Indication: ILL-DEFINED DISORDER
     Route: 065
  2. CLOZAPINE [Concomitant]
     Indication: ILL-DEFINED DISORDER
     Route: 048
     Dates: start: 20030401, end: 20030401

REACTIONS (4)
  - DIFFICULTY IN WALKING [None]
  - DYSARTHRIA [None]
  - DYSSTASIA [None]
  - THERAPEUTIC AGENT TOXICITY [None]
